FAERS Safety Report 21705730 (Version 1)
Quarter: 2022Q4

REPORT INFORMATION
  Report Type: Spontaneous
  Country: US (occurrence: US)
  Receive Date: 20221209
  Receipt Date: 20221209
  Transmission Date: 20230113
  Serious: Yes (Other)
  Sender: FDA-Public Use
  Company Number: US-REGENERON PHARMACEUTICALS, INC.-2022-156367

PATIENT
  Sex: Female

DRUGS (4)
  1. EYLEA [Suspect]
     Active Substance: AFLIBERCEPT
     Indication: Neovascular age-related macular degeneration
     Dosage: 2 MG, EVERY 4 TO 6 WEEKS IN BOTH OF HER EYES; PRE-FILLED SYRINGE (UNKNOWN)
  2. EYLEA [Suspect]
     Active Substance: AFLIBERCEPT
     Dosage: 2 MG, EVERY 4 TO 6 WEEKS IN LEFT EYE; PRE-FILLED SYRINGE (UNKNOWN)
     Dates: start: 20220826, end: 20220826
  3. EYLEA [Suspect]
     Active Substance: AFLIBERCEPT
     Dosage: 2 MG, EVERY 4 TO 6 WEEKS IN RIGHT EYE, PRE-FILLED SYRINGE (UNKNOWN)
     Dates: start: 20220923, end: 20220923
  4. EYLEA [Suspect]
     Active Substance: AFLIBERCEPT
     Dosage: 2 MG, EVERY 4 TO 6 WEEKS IN RIGHT EYE; PRE-FILLED SYRINGE (UNKNOWN)
     Dates: start: 20221027, end: 20221027

REACTIONS (1)
  - Eye haemorrhage [Not Recovered/Not Resolved]

NARRATIVE: CASE EVENT DATE: 20221203
